FAERS Safety Report 9801973 (Version 1)
Quarter: 2014Q1

REPORT INFORMATION
  Report Type: Spontaneous
  Country: GB (occurrence: GB)
  Receive Date: 20140107
  Receipt Date: 20140107
  Transmission Date: 20141002
  Serious: Yes (Disabling)
  Sender: FDA-Public Use
  Company Number: GB-TEVA-453778ISR

PATIENT
  Age: 83 Year
  Sex: Female
  Weight: 87 kg

DRUGS (9)
  1. ROPINIROLE [Suspect]
     Route: 048
     Dates: start: 20131009
  2. AMITRIPTYLINE HYDROCHLORIDE [Concomitant]
     Dates: start: 20130827, end: 20130924
  3. AMITRIPTYLINE HYDROCHLORIDE [Concomitant]
     Dates: start: 20131009, end: 20131106
  4. ASPIRIN [Concomitant]
     Dates: start: 20130827, end: 20131204
  5. CO-CODAMOL [Concomitant]
     Dates: start: 20130827
  6. QUININE [Concomitant]
     Dates: start: 20130827
  7. RAMIPRIL [Concomitant]
     Dates: start: 20130827, end: 20131204
  8. SIMVASTATIN [Concomitant]
     Dates: start: 20130827, end: 20131022
  9. IBUPROFEN [Concomitant]
     Dates: start: 20131019, end: 20131116

REACTIONS (3)
  - Muscle spasms [Recovering/Resolving]
  - Musculoskeletal stiffness [Recovering/Resolving]
  - Mobility decreased [Recovering/Resolving]
